FAERS Safety Report 14751729 (Version 1)
Quarter: 2018Q2

REPORT INFORMATION
  Report Type: Spontaneous
  Country: US (occurrence: US)
  Receive Date: 20180412
  Receipt Date: 20180412
  Transmission Date: 20180711
  Serious: Yes (Other)
  Sender: FDA-Public Use
  Company Number: US-DRREDDYS-USA/USA/18/0096644

PATIENT
  Age: 20 Year
  Sex: Female
  Weight: 54.4 kg

DRUGS (1)
  1. AUGMENTIN [Suspect]
     Active Substance: AMOXICILLIN\CLAVULANATE POTASSIUM
     Indication: SINUSITIS
     Route: 048
     Dates: start: 20180225

REACTIONS (2)
  - Infectious mononucleosis [Not Recovered/Not Resolved]
  - Condition aggravated [Unknown]
